FAERS Safety Report 10660411 (Version 2)
Quarter: 2014Q4

REPORT INFORMATION
  Report Type: Spontaneous
  Country: US (occurrence: US)
  Receive Date: 20141217
  Receipt Date: 20141217
  Transmission Date: 20150529
  Serious: Yes (Death, Other)
  Sender: FDA-Public Use
  Company Number: US-ELI_LILLY_AND_COMPANY-US200512002320

PATIENT
  Age: 72 Year
  Sex: Female

DRUGS (16)
  1. ALBUTEROL. [Concomitant]
     Active Substance: ALBUTEROL
     Route: 055
  2. MULTIVITAMINS, PLAIN [Concomitant]
     Active Substance: VITAMINS
  3. OXYBUTYNIN [Concomitant]
     Active Substance: OXYBUTYNIN
  4. ASA [Concomitant]
     Active Substance: ASPIRIN
  5. GABAPENTIN. [Concomitant]
     Active Substance: GABAPENTIN
  6. CHONDROITIN SULFATE (BOVINE) [Concomitant]
     Active Substance: CHONDROITIN SULFATE (BOVINE)
  7. METFORMIN [Concomitant]
     Active Substance: METFORMIN HYDROCHLORIDE
  8. CALCIUM [Concomitant]
     Active Substance: CALCIUM
  9. FORTEO [Suspect]
     Active Substance: TERIPARATIDE
     Indication: OSTEOPOROSIS
     Dosage: 20 UG, QD
     Route: 065
     Dates: start: 200402, end: 2005
  10. SULCRATE [Concomitant]
     Active Substance: SUCRALFATE
  11. OMEPRAZOLE. [Concomitant]
     Active Substance: OMEPRAZOLE
  12. LORAZEPAM. [Concomitant]
     Active Substance: LORAZEPAM
  13. GLUCOSAMINE [Concomitant]
     Active Substance: GLUCOSAMINE
  14. ERGOCALCIFEROL/CALCIUM PHOSP/CALCIUM SOD LACT [Concomitant]
  15. FLUTICASONE PROPIONATE W/SALMETEROL [Concomitant]
     Active Substance: FLUTICASONE PROPIONATE\SALMETEROL XINAFOATE
     Route: 055
  16. AMITRIPTYLINE [Concomitant]
     Active Substance: AMITRIPTYLINE

REACTIONS (7)
  - Metastases to bone [Unknown]
  - Lung cancer metastatic [Fatal]
  - Pain [Unknown]
  - Arrhythmia [Unknown]
  - Gastritis [Unknown]
  - Osteosarcoma metastatic [Fatal]
  - Pneumothorax [Unknown]

NARRATIVE: CASE EVENT DATE: 200411
